FAERS Safety Report 6383465-8 (Version None)
Quarter: 2009Q4

REPORT INFORMATION
  Report Type: 
  Country: None (occurrence: None)
  Receive Date: 20091001
  Receipt Date: 20090918
  Transmission Date: 20100525
  Serious: Yes (Hospitalization, Other)
  Sender: FDA-Public Use
  Company Number: PHHY2009BR40238

PATIENT
  Age: 74 Year
  Sex: Male
  Weight: 90 kg

DRUGS (7)
  1. FORASEQ [Suspect]
     Indication: BRONCHITIS
     Dosage: UNK
     Dates: start: 20081030
  2. FORASEQ [Suspect]
     Indication: PYOTHORAX
  3. BAMIFIX [Concomitant]
     Indication: BRONCHOSPASM
     Dosage: 1 DF, QHS
  4. METFORMINA ^NOVARTIS^ [Concomitant]
     Indication: DIABETES MELLITUS
     Dosage: 1 DF, BID
  5. ENALAPRIL MALEATE [Concomitant]
     Dosage: 0.5 DF, BID
  6. DIGOXIN [Concomitant]
     Indication: CARDIAC DISORDER
     Dosage: 25 MG, UNK
     Route: 048
  7. LASIX [Concomitant]
     Indication: HYPERTENSION
     Dosage: 1 DF, QD

REACTIONS (7)
  - BLOOD GLUCOSE INCREASED [None]
  - BLOOD PRESSURE INCREASED [None]
  - BRONCHITIS [None]
  - HYPERGLYCAEMIA [None]
  - NASOPHARYNGITIS [None]
  - PNEUMONIA [None]
  - TREATMENT NONCOMPLIANCE [None]
